FAERS Safety Report 10120838 (Version 4)
Quarter: 2014Q3

REPORT INFORMATION
  Report Type: Spontaneous
  Country: JP (occurrence: JP)
  Receive Date: 20140425
  Receipt Date: 20140918
  Transmission Date: 20150326
  Serious: Yes (Hospitalization, Other)
  Sender: FDA-Public Use
  Company Number: JP-BRISTOL-MYERS SQUIBB COMPANY-20653879

PATIENT
  Age: 88 Year
  Sex: Female
  Weight: 39 kg

DRUGS (4)
  1. ASPENON [Concomitant]
     Active Substance: APRINDINE HYDROCHLORIDE
     Indication: THROMBOSIS PROPHYLAXIS
     Route: 048
     Dates: start: 20140321
  2. OLMESARTAN MEDOXOMIL [Concomitant]
     Active Substance: OLMESARTAN MEDOXOMIL
     Indication: HYPERTENSION
     Dosage: REZALTAS TAB
     Route: 048
     Dates: start: 20140404
  3. ELIQUIS [Suspect]
     Active Substance: APIXABAN
     Indication: THROMBOSIS PROPHYLAXIS
     Dosage: INTERRUPTED ON 12-APR-2014?RESUMED ON 17-APR-2014
     Route: 048
     Dates: start: 20140318
  4. LUPRAC [Concomitant]
     Active Substance: TORSEMIDE
     Indication: CARDIAC FAILURE CHRONIC
     Dosage: TAB
     Route: 048
     Dates: start: 20140328

REACTIONS (3)
  - Muscle haemorrhage [Recovered/Resolved]
  - Arteriogram coronary [Unknown]
  - Medication error [Unknown]

NARRATIVE: CASE EVENT DATE: 20140404
